FAERS Safety Report 22088881 (Version 1)
Quarter: 2023Q1

REPORT INFORMATION
  Report Type: Spontaneous
  Country: CA (occurrence: CA)
  Receive Date: 20230313
  Receipt Date: 20230313
  Transmission Date: 20230417
  Serious: Yes (Other)
  Sender: FDA-Public Use
  Company Number: CA-002147023-NVSC2023CA052196

PATIENT
  Age: 2 Day
  Sex: Male
  Weight: 3 kg

DRUGS (4)
  1. GENTAMICIN SULFATE [Suspect]
     Active Substance: GENTAMICIN SULFATE
     Indication: CNS ventriculitis
     Dosage: 2.5 MG/KG, BID
     Route: 042
  2. VANCOMYCIN HYDROCHLORIDE [Suspect]
     Active Substance: VANCOMYCIN HYDROCHLORIDE
     Indication: CNS ventriculitis
     Dosage: UNK
     Route: 065
  3. VANCOMYCIN HYDROCHLORIDE [Suspect]
     Active Substance: VANCOMYCIN HYDROCHLORIDE
     Dosage: 18.0 MG/KG, BID
     Route: 042
  4. VANCOMYCIN HYDROCHLORIDE [Suspect]
     Active Substance: VANCOMYCIN HYDROCHLORIDE
     Dosage: UNK
     Route: 065

REACTIONS (3)
  - Incorrect route of product administration [Unknown]
  - Off label use [Unknown]
  - Drug ineffective [Unknown]
